FAERS Safety Report 8978033 (Version 1)
Quarter: 2012Q4

REPORT INFORMATION
  Report Type: 
  Country: US (occurrence: US)
  Receive Date: 20121220
  Receipt Date: 20121220
  Transmission Date: 20130627
  Serious: No
  Sender: FDA-Public Use
  Company Number: US-PFIZER INC-2012320831

PATIENT
  Age: 61 Year
  Sex: Female
  Weight: 72.56 kg

DRUGS (4)
  1. SUTENT [Suspect]
     Indication: PANCREATIC CANCER
     Dosage: 37.5 mg, 1x/day
     Route: 048
     Dates: start: 201210, end: 201210
  2. COMBIVENT [Concomitant]
     Indication: ASTHMA
     Dosage: UNK
  3. SYMBICORT [Concomitant]
     Indication: ASTHMA
     Dosage: UNK
  4. EFFEXOR [Concomitant]
     Indication: DEPRESSION
     Dosage: UNK

REACTIONS (5)
  - Pain in extremity [Recovered/Resolved]
  - Skin exfoliation [Recovered/Resolved]
  - Blister [Recovered/Resolved]
  - Oral pain [Recovered/Resolved]
  - Mouth ulceration [Recovered/Resolved]
